FAERS Safety Report 16032696 (Version 1)
Quarter: 2019Q1

REPORT INFORMATION
  Report Type: Spontaneous
  Country: US (occurrence: US)
  Receive Date: 20190305
  Receipt Date: 20190305
  Transmission Date: 20190418
  Serious: Yes (Other)
  Sender: FDA-Public Use
  Company Number: US-INSYS THERAPEUTICS, INC-INS201902-000332

PATIENT
  Age: 4 Year
  Sex: Female

DRUGS (3)
  1. FENTANYL. [Suspect]
     Active Substance: FENTANYL
     Indication: PRODUCT USED FOR UNKNOWN INDICATION
  2. LINEZOLID. [Suspect]
     Active Substance: LINEZOLID
  3. FLUOXETINE [Suspect]
     Active Substance: FLUOXETINE HYDROCHLORIDE

REACTIONS (1)
  - Serotonin syndrome [Unknown]
